FAERS Safety Report 22639244 (Version 2)
Quarter: 2023Q2

REPORT INFORMATION
  Report Type: Spontaneous
  Country: GB (occurrence: GB)
  Receive Date: 20230626
  Receipt Date: 20230629
  Transmission Date: 20230722
  Serious: Yes (Life-Threatening, Hospitalization, Other)
  Sender: FDA-Public Use
  Company Number: GB-Flamingo-014206

PATIENT
  Age: 48 Year
  Sex: Female
  Weight: 57 kg

DRUGS (11)
  1. ACETAMINOPHEN [Suspect]
     Active Substance: ACETAMINOPHEN
     Indication: Analgesic therapy
     Dosage: 2.6 GRAM, FOUR TIMES/DAY
     Route: 050
  2. ACETAMINOPHEN [Suspect]
     Active Substance: ACETAMINOPHEN
     Indication: Analgesic therapy
     Dosage: 1 GRAM, FOUR TIMES/DAY(IF NOT TOLERATED ORALLY)
     Route: 042
  3. RIVAROXABAN [Suspect]
     Active Substance: RIVAROXABAN
     Indication: Deep vein thrombosis
     Dosage: 20 MILLIGRAM, ONCE A DAY
     Route: 048
  4. BETAINE [Concomitant]
     Active Substance: BETAINE
     Indication: Homocystinuria
     Dosage: 6 GRAM, 3 TIMES A DAY (8HRS)
     Route: 065
  5. BETAINE [Concomitant]
     Active Substance: BETAINE
     Dosage: 6 G THREE TIMES DAILY (TDS)
  6. CYANOCOBALAMIN [Concomitant]
     Active Substance: CYANOCOBALAMIN
     Indication: Homocystinuria
     Dosage: 50 MICROGRAM, ONCE A DAY
     Route: 065
  7. FENTANYL [Concomitant]
     Active Substance: FENTANYL
     Indication: Analgesic therapy
     Dosage: UNK
     Route: 065
  8. FENTANYL [Concomitant]
     Active Substance: FENTANYL
     Indication: Analgesic therapy
  9. FOLIC ACID [Concomitant]
     Active Substance: FOLIC ACID
     Indication: Homocystinuria
     Dosage: 5 MILLIGRAM, ONCE A DAY
     Route: 065
  10. GABAPENTIN [Concomitant]
     Active Substance: GABAPENTIN
     Indication: Analgesic therapy
     Dosage: 100 MILLIGRAM, 3 TIMES A DAY
     Route: 065
  11. GABAPENTIN [Concomitant]
     Active Substance: GABAPENTIN
     Indication: Analgesic therapy

REACTIONS (10)
  - Haematemesis [Unknown]
  - Hepatic fibrosis [Unknown]
  - Hepatic steatosis [Unknown]
  - Ileus [Recovering/Resolving]
  - Coagulopathy [Recovering/Resolving]
  - Epistaxis [Recovering/Resolving]
  - Acute hepatic failure [Recovered/Resolved]
  - Hepatic encephalopathy [Recovered/Resolved]
  - Pulmonary oedema [Recovered/Resolved]
  - Hypoglycaemia [Recovered/Resolved]
